FAERS Safety Report 15808574 (Version 1)
Quarter: 2019Q1

REPORT INFORMATION
  Report Type: Spontaneous
  Country: US (occurrence: US)
  Receive Date: 20190110
  Receipt Date: 20190110
  Transmission Date: 20190417
  Serious: No
  Sender: FDA-Public Use
  Company Number: US-SA-2019SA005901

PATIENT
  Age: 70 Year
  Sex: Male

DRUGS (2)
  1. PLAVIX [Suspect]
     Active Substance: CLOPIDOGREL BISULFATE
     Indication: CATHETERISATION CARDIAC
     Dosage: UNK
     Dates: start: 20181002, end: 20181227
  2. MORPHINE [Concomitant]
     Active Substance: MORPHINE
     Dosage: UNK UNK, QD

REACTIONS (2)
  - Somnolence [Unknown]
  - Fatigue [Unknown]
